FAERS Safety Report 10094639 (Version 1)
Quarter: 2014Q2

REPORT INFORMATION
  Report Type: Spontaneous
  Country: US (occurrence: None)
  Receive Date: 20140418
  Receipt Date: 20140418
  Transmission Date: 20141212
  Serious: Yes (Other)
  Sender: FDA-Public Use
  Company Number: 2014-US-004455

PATIENT
  Age: 23 Year
  Sex: Female

DRUGS (1)
  1. XYREM (SODIUM OXYBATE) ORAL SOLUTION, 500MG/ML [Suspect]
     Indication: ANXIETY
     Route: 048
     Dates: start: 201402, end: 201402

REACTIONS (3)
  - Ear tube insertion [None]
  - Feeling abnormal [None]
  - Off label use [None]
